FAERS Safety Report 18364839 (Version 1)
Quarter: 2020Q4

REPORT INFORMATION
  Report Type: Spontaneous
  Country: GB (occurrence: GB)
  Receive Date: 20201009
  Receipt Date: 20201009
  Transmission Date: 20210114
  Serious: Yes (Hospitalization, Other)
  Sender: FDA-Public Use
  Company Number: GB-ACCORD-204563

PATIENT
  Age: 67 Year
  Sex: Male

DRUGS (2)
  1. DOCETAXEL. [Suspect]
     Active Substance: DOCETAXEL
     Indication: PROSTATE CANCER METASTATIC
     Dates: end: 2016
  2. RADIUM 223 [Suspect]
     Active Substance: RADIUM RA-223 DICHLORIDE
     Indication: PROSTATE CANCER METASTATIC
     Dates: start: 2017, end: 2017

REACTIONS (3)
  - Pancytopenia [Unknown]
  - Myelosuppression [Unknown]
  - Nocardiosis [Recovering/Resolving]
